FAERS Safety Report 12781567 (Version 1)
Quarter: 2016Q3

REPORT INFORMATION
  Report Type: Spontaneous
  Country: US (occurrence: US)
  Receive Date: 20160926
  Receipt Date: 20160926
  Transmission Date: 20161109
  Serious: No
  Sender: FDA-Public Use
  Company Number: US-ALLERGAN-1653712US

PATIENT
  Sex: Male

DRUGS (2)
  1. CARAFATE [Suspect]
     Active Substance: SUCRALFATE
     Indication: GASTRIC ULCER
     Dosage: 2 TSP
     Route: 048
  2. CARAFATE [Suspect]
     Active Substance: SUCRALFATE
     Indication: GASTROINTESTINAL INFLAMMATION

REACTIONS (8)
  - Throat irritation [Not Recovered/Not Resolved]
  - Oropharyngeal pain [Not Recovered/Not Resolved]
  - Insomnia [Not Recovered/Not Resolved]
  - Constipation [Not Recovered/Not Resolved]
  - Eye disorder [Not Recovered/Not Resolved]
  - Abdominal pain upper [Not Recovered/Not Resolved]
  - Dry mouth [Not Recovered/Not Resolved]
  - Back pain [Not Recovered/Not Resolved]

NARRATIVE: CASE EVENT DATE: 201602
